FAERS Safety Report 23869028 (Version 2)
Quarter: 2024Q2

REPORT INFORMATION
  Report Type: Spontaneous
  Country: DE (occurrence: None)
  Receive Date: 20240517
  Receipt Date: 20240520
  Transmission Date: 20240716
  Serious: Yes (Hospitalization)
  Sender: FDA-Public Use
  Company Number: 2024A105460

PATIENT
  Age: 52 Year
  Sex: Male

DRUGS (14)
  1. QUETIAPINE [Suspect]
     Active Substance: QUETIAPINE
     Route: 048
     Dates: start: 20230919, end: 20230919
  2. QUETIAPINE [Suspect]
     Active Substance: QUETIAPINE
     Route: 048
     Dates: start: 20230920, end: 20230920
  3. QUETIAPINE [Suspect]
     Active Substance: QUETIAPINE
     Route: 048
     Dates: start: 20230921, end: 20230921
  4. QUETIAPINE [Suspect]
     Active Substance: QUETIAPINE
     Route: 048
     Dates: start: 20230922, end: 20230922
  5. QUETIAPINE [Suspect]
     Active Substance: QUETIAPINE
     Route: 048
     Dates: start: 20230923, end: 20231019
  6. LITHIUM CARBONATE [Suspect]
     Active Substance: LITHIUM CARBONATE
     Dosage: 0-450MG/DAY
     Dates: start: 20230828, end: 20230904
  7. LITHIUM CARBONATE [Suspect]
     Active Substance: LITHIUM CARBONATE
     Dates: start: 20230905, end: 20230911
  8. LITHIUM CARBONATE [Suspect]
     Active Substance: LITHIUM CARBONATE
     Dates: start: 20230912, end: 20230918
  9. LITHIUM CARBONATE [Suspect]
     Active Substance: LITHIUM CARBONATE
     Dosage: 1325-0 MG/DAY
     Dates: start: 20230919, end: 20240102
  10. DIAZEPAM [Concomitant]
     Active Substance: DIAZEPAM
     Dates: start: 20230701
  11. RISPERIDONE [Concomitant]
     Active Substance: RISPERIDONE
     Dates: start: 20230921, end: 20230923
  12. RISPERIDONE [Concomitant]
     Active Substance: RISPERIDONE
     Dates: start: 20230913, end: 20230920
  13. RISPERIDONE [Concomitant]
     Active Substance: RISPERIDONE
     Dates: start: 20230401, end: 20230912
  14. RISPERIDONE [Concomitant]
     Active Substance: RISPERIDONE
     Dates: start: 20230924, end: 20230925

REACTIONS (6)
  - Malaise [Recovering/Resolving]
  - Pruritus [Recovering/Resolving]
  - Chills [Recovering/Resolving]
  - Rash maculo-papular [Recovering/Resolving]
  - Eosinophilia [Recovering/Resolving]
  - Mania [Unknown]

NARRATIVE: CASE EVENT DATE: 20231013
